FAERS Safety Report 8678209 (Version 2)
Quarter: 2013Q2

REPORT INFORMATION
  Report Type: Spontaneous
  Country: US (occurrence: None)
  Receive Date: 20120406
  Receipt Date: 20120705
  Transmission Date: 20140414
  Serious: Yes (Hospitalization)
  Sender: FDA-Public Use
  Company Number: US-CYPR-2011-000081

PATIENT
  Age: 72 Year
  Sex: Male
  Weight: 132 kg

DRUGS (14)
  1. CLOPIDOGREL OR PLACEBO [Suspect]
     Indication: ANTIPLATELET THERAPY
     Route: 048
     Dates: start: 20101208
  2. ASPIRIN [Suspect]
     Indication: CORONARY ARTERY DISEASE
     Route: 048
     Dates: start: 20091209, end: 201108
  3. LISINOPRIL [Concomitant]
  4. LANTUS [Concomitant]
  5. COREG [Concomitant]
  6. BUMEX [Concomitant]
  7. GLIMEPIRIDE [Concomitant]
  8. EFFEXOR [Concomitant]
  9. PLAVIX [Concomitant]
  10. NEURONTIN [Concomitant]
  11. DETROL [Concomitant]
  12. ZOCOR [Concomitant]
  13. CYPHER STENT [Concomitant]
  14. NOVOLOG [Concomitant]

REACTIONS (1)
  - DIZZINESS [None]
